FAERS Safety Report 24296484 (Version 1)
Quarter: 2024Q3

REPORT INFORMATION
  Report Type: Spontaneous
  Country: CA (occurrence: CA)
  Receive Date: 20240909
  Receipt Date: 20240909
  Transmission Date: 20241017
  Serious: Yes (Hospitalization, Other)
  Sender: AUROBINDO
  Company Number: CA-MLMSERVICE-20230615-4352005-1

PATIENT
  Age: 32 Year
  Sex: Female

DRUGS (13)
  1. TOPIRAMATE [Suspect]
     Active Substance: TOPIRAMATE
     Indication: Obsessive-compulsive disorder
     Dosage: 50 MILLIGRAM
     Route: 065
  2. SERTRALINE [Suspect]
     Active Substance: SERTRALINE HYDROCHLORIDE
     Indication: Obsessive-compulsive disorder
     Dosage: 150 MILLIGRAM, ONCE A DAY
     Route: 065
  3. SERTRALINE [Suspect]
     Active Substance: SERTRALINE HYDROCHLORIDE
     Indication: Obsessive-compulsive disorder
     Dosage: 50 MILLIGRAM, ONCE A DAY
     Route: 065
  4. RISPERIDONE [Suspect]
     Active Substance: RISPERIDONE
     Indication: Obsessive-compulsive disorder
     Dosage: 0.5 MILLIGRAM, ONCE A DAY
     Route: 065
  5. QUETIAPINE FUMARATE [Suspect]
     Active Substance: QUETIAPINE FUMARATE
     Indication: Obsessive-compulsive disorder
     Dosage: 500 MILLIGRAM, ONCE A DAY
     Route: 065
  6. RISPERIDONE [Suspect]
     Active Substance: RISPERIDONE
     Indication: Obsessive-compulsive disorder
     Dosage: 0.5 MILLIGRAM, ONCE A DAY
     Route: 065
  7. TOPIRAMATE [Suspect]
     Active Substance: TOPIRAMATE
     Indication: Obsessive-compulsive disorder
     Dosage: 50 MILLIGRAM
     Route: 065
  8. QUETIAPINE [Concomitant]
     Active Substance: QUETIAPINE
     Indication: Bipolar II disorder
     Dosage: 500 MILLIGRAM, ONCE A DAY
     Route: 065
     Dates: start: 2016
  9. QUETIAPINE [Concomitant]
     Active Substance: QUETIAPINE
     Indication: Hypomania
  10. LITHIUM [Concomitant]
     Active Substance: LITHIUM
     Indication: Bipolar II disorder
     Dosage: 750 MILLIGRAM, ONCE A DAY
     Route: 065
     Dates: start: 2016
  11. LITHIUM [Concomitant]
     Active Substance: LITHIUM
     Indication: Obsessive-compulsive disorder
  12. LITHIUM [Concomitant]
     Active Substance: LITHIUM
     Indication: Hypomania
  13. ARIPIPRAZOLE [Concomitant]
     Active Substance: ARIPIPRAZOLE
     Indication: Major depression
     Dosage: 2 MILLIGRAM, ONCE A DAY
     Route: 065

REACTIONS (4)
  - Cognitive disorder [Recovered/Resolved]
  - Hypomania [Recovered/Resolved]
  - Maternal exposure during pregnancy [Recovered/Resolved]
  - Therapeutic product effect incomplete [Recovered/Resolved]
